FAERS Safety Report 4855541-X (Version None)
Quarter: 2005Q4

REPORT INFORMATION
  Report Type: 
  Country: None (occurrence: None)
  Receive Date: 20051214
  Receipt Date: 20051201
  Transmission Date: 20060501
  Serious: Yes (Hospitalization)
  Sender: FDA-Public Use
  Company Number: HQWYE824205DEC05

PATIENT
  Age: 73 Year
  Sex: Male

DRUGS (3)
  1. PRIMATENE MIST [Suspect]
     Indication: CHRONIC OBSTRUCTIVE PULMONARY DISEASE
     Dosage: 0.22 MG PER PUFF UP TO 4 PUFFS AT A TIME
  2. PRIMATENE MIST [Suspect]
     Indication: DYSPNOEA
     Dosage: 0.22 MG PER PUFF UP TO 4 PUFFS AT A TIME
  3. ADVIL [Suspect]
     Dosage: OCCASIONAL

REACTIONS (4)
  - APHASIA [None]
  - CEREBRAL HAEMORRHAGE [None]
  - CEREBROVASCULAR ACCIDENT [None]
  - HYPERTENSION [None]
